FAERS Safety Report 10595405 (Version 1)
Quarter: 2014Q4

REPORT INFORMATION
  Report Type: Report from Study
  Country: BR (occurrence: BR)
  Receive Date: 20141120
  Receipt Date: 20141120
  Transmission Date: 20150529
  Serious: Yes (Other)
  Sender: FDA-Public Use
  Company Number: PHHY2014BR150572

PATIENT
  Sex: Female
  Weight: 72 kg

DRUGS (2)
  1. DIOVAN [Suspect]
     Active Substance: VALSARTAN
     Indication: HYPERTENSION
     Dosage: 1 DF, QD
     Route: 065
  2. SELOZOK [Suspect]
     Active Substance: METOPROLOL SUCCINATE
     Indication: BLOOD PRESSURE ABNORMAL
     Dosage: 1.5 DF (IN THE MORNING/ 1 TABLET AT NIGHT)
     Route: 065

REACTIONS (4)
  - Blood potassium increased [Unknown]
  - Blood pressure decreased [Recovered/Resolved]
  - Cataract [Unknown]
  - Visual impairment [Unknown]
